FAERS Safety Report 4614850-X (Version None)
Quarter: 2005Q1

REPORT INFORMATION
  Report Type: 
  Country: None (occurrence: None)
  Receive Date: 20050318
  Receipt Date: 20050318
  Transmission Date: 20050727
  Serious: Yes (Life-Threatening)
  Sender: FDA-Public Use
  Company Number: None

PATIENT
  Age: 64 Year
  Sex: Female

DRUGS (8)
  1. ENBREL [Suspect]
     Indication: RHEUMATOID ARTHRITIS
     Dosage: 25MG   TWICE WEEKLY    SUBCUTANEOUS
     Route: 058
     Dates: start: 20040420, end: 20050227
  2. METHOTREXATE [Concomitant]
  3. PREDNISONE [Concomitant]
  4. VOLTAREN [Concomitant]
  5. AVALIDE [Concomitant]
  6. ATENOLOL [Concomitant]
  7. DETROL [Concomitant]
  8. CELEBREX [Concomitant]

REACTIONS (3)
  - BREAST MASS [None]
  - CHEST WALL PAIN [None]
  - DISCOMFORT [None]
